FAERS Safety Report 4307327-2 (Version None)
Quarter: 2004Q1

REPORT INFORMATION
  Report Type: 
  Country: None (occurrence: None)
  Receive Date: 20040226
  Receipt Date: 20040218
  Transmission Date: 20041129
  Serious: Yes (Death, Hospitalization)
  Sender: FDA-Public Use
  Company Number: HQWYE126818FEB04

PATIENT
  Age: 74 Year
  Sex: Male
  Weight: 85.3 kg

DRUGS (7)
  1. MYLOTARG [Suspect]
     Indication: ACUTE MYELOID LEUKAEMIA
     Dosage: 15 MG 1 X PER 1 DAY, INTRAVENOUS
     Route: 042
     Dates: start: 20030801, end: 20030801
  2. GLYBURIDE [Concomitant]
  3. HALOTESTIN (FLUOXYMESTERONE) [Concomitant]
  4. NPH INSULIN [Concomitant]
  5. LISINOPRIL [Concomitant]
  6. VERAPAMIL [Concomitant]
  7. LEVAQUIN [Concomitant]

REACTIONS (10)
  - ACUTE MYELOID LEUKAEMIA [None]
  - BACK PAIN [None]
  - CEREBRAL ATROPHY [None]
  - CHOLELITHIASIS [None]
  - DELIRIUM [None]
  - MALIGNANT NEOPLASM PROGRESSION [None]
  - MENTAL IMPAIRMENT [None]
  - METASTASES TO SPINE [None]
  - PAIN IN EXTREMITY [None]
  - SPLENOMEGALY [None]
